FAERS Safety Report 8581217-1 (Version None)
Quarter: 2012Q3

REPORT INFORMATION
  Report Type: 
  Country: None (occurrence: None)
  Receive Date: 20120809
  Receipt Date: 20120802
  Transmission Date: 20120928
  Serious: Yes (Other)
  Sender: FDA-Public Use
  Company Number: PHHY2012EC068069

PATIENT
  Sex: Male

DRUGS (2)
  1. EXELON [Suspect]
     Dosage: 9.5 MG PER 10 CM 1 PATCH DAILY
     Route: 062
     Dates: start: 20110101
  2. TEGRETOL [Concomitant]

REACTIONS (4)
  - SPEECH DISORDER [None]
  - MEMORY IMPAIRMENT [None]
  - GAIT DISTURBANCE [None]
  - DRUG INEFFECTIVE [None]
